FAERS Safety Report 21621550 (Version 1)
Quarter: 2022Q4

REPORT INFORMATION
  Report Type: Spontaneous
  Country: US (occurrence: US)
  Receive Date: 20221121
  Receipt Date: 20221121
  Transmission Date: 20230113
  Serious: No
  Sender: FDA-Public Use
  Company Number: US-BRISTOL-MYERS SQUIBB COMPANY-2022-133200

PATIENT
  Age: 55 Year
  Sex: Female

DRUGS (2)
  1. ELIQUIS [Suspect]
     Active Substance: APIXABAN
     Dosage: UNK
     Route: 065
  2. IBRANCE [Suspect]
     Active Substance: PALBOCICLIB
     Indication: Breast cancer female
     Dosage: 100 MILLIGRAM(S) FROM 21-SEP-2022 21 EVERY 28 DAY
     Route: 048
     Dates: start: 20220921

REACTIONS (1)
  - Decreased appetite [Unknown]
